FAERS Safety Report 8284722-0 (Version None)
Quarter: 2012Q2

REPORT INFORMATION
  Report Type: 
  Country: None (occurrence: None)
  Receive Date: 20120413
  Receipt Date: 20110606
  Transmission Date: 20120825
  Serious: No
  Sender: FDA-Public Use
  Company Number: US-ASTRAZENECA-2009SE12873

PATIENT
  Sex: Female

DRUGS (9)
  1. PRILOSEC [Suspect]
     Route: 048
  2. ZOMIG [Suspect]
     Indication: MIGRAINE
     Route: 048
  3. MECLIZINE [Concomitant]
     Indication: DIZZINESS
  4. PROPRANOLOL [Concomitant]
     Indication: MIGRAINE
  5. NEXIUM [Suspect]
     Indication: DYSPEPSIA
     Route: 048
  6. NORTRIPTYLINE HCL [Concomitant]
     Indication: MIGRAINE
  7. PRILOSEC [Suspect]
     Route: 048
  8. METOPROLOL TARTRATE [Concomitant]
     Indication: HYPERTENSION
  9. BENGAY [Concomitant]
     Indication: MIGRAINE

REACTIONS (3)
  - MIGRAINE [None]
  - DYSPEPSIA [None]
  - DIZZINESS [None]
